FAERS Safety Report 6201527-2 (Version None)
Quarter: 2009Q2

REPORT INFORMATION
  Report Type: 
  Country: None (occurrence: None)
  Receive Date: 20090526
  Receipt Date: 20090515
  Transmission Date: 20091009
  Serious: No
  Sender: FDA-Public Use
  Company Number: US-JNJFOC-20090504385

PATIENT

DRUGS (2)
  1. DURAGESIC-100 [Suspect]
  2. DURAGESIC-100 [Suspect]
     Indication: DRUG EXPOSURE VIA BREAST MILK

REACTIONS (1)
  - DRUG EXPOSURE VIA BREAST MILK [None]
